FAERS Safety Report 11865262 (Version 1)
Quarter: 2015Q4

REPORT INFORMATION
  Report Type: Spontaneous
  Country: FR (occurrence: FR)
  Receive Date: 20151223
  Receipt Date: 20151223
  Transmission Date: 20160305
  Serious: Yes (Other)
  Sender: FDA-Public Use
  Company Number: FR-PFIZER INC-2015460406

PATIENT
  Age: 15 Year
  Sex: Female

DRUGS (2)
  1. ORELOX [Suspect]
     Active Substance: CEFPODOXIME
     Indication: TONSILLITIS
     Dosage: 2 DF (100 MG), TOTAL
     Route: 048
     Dates: start: 20150129, end: 20150130
  2. DOLIPRANE [Concomitant]
     Active Substance: ACETAMINOPHEN
     Indication: TONSILLITIS
     Dosage: UNK

REACTIONS (3)
  - Toxic skin eruption [Recovered/Resolved]
  - Hypersensitivity [Recovered/Resolved]
  - Face oedema [Recovered/Resolved]

NARRATIVE: CASE EVENT DATE: 20150131
